FAERS Safety Report 24242651 (Version 4)
Quarter: 2024Q4

REPORT INFORMATION
  Report Type: Spontaneous
  Country: KZ (occurrence: KZ)
  Receive Date: 20240823
  Receipt Date: 20241118
  Transmission Date: 20250115
  Serious: Yes (Death, Hospitalization, Other)
  Sender: TAKEDA
  Company Number: KZ-TAKEDA-2024TUS083430

PATIENT
  Age: 10 Month
  Sex: Female
  Weight: 7 kg

DRUGS (1)
  1. CUVITRU [Suspect]
     Active Substance: HUMAN IMMUNOGLOBULIN G
     Indication: Combined immunodeficiency
     Dosage: 2.8 GRAM

REACTIONS (5)
  - Death [Fatal]
  - Disseminated Bacillus Calmette-Guerin infection [Unknown]
  - Vaccination complication [Unknown]
  - Skin mass [Recovering/Resolving]
  - Pyrexia [Recovered/Resolved]

NARRATIVE: CASE EVENT DATE: 20240826
